FAERS Safety Report 7921728 (Version 6)
Quarter: 2013Q4

REPORT INFORMATION
  Report Type: Spontaneous
  Country: US (occurrence: US)
  Receive Date: 20110429
  Receipt Date: 20131118
  Transmission Date: 20140711
  Serious: No
  Sender: FDA-Public Use
  Company Number: US-ASTRAZENECA-2010SE48803

PATIENT
  Age: 49 Year
  Sex: Male
  Weight: 65.8 kg

DRUGS (1)
  1. NEXIUM [Suspect]
     Indication: GASTROOESOPHAGEAL REFLUX DISEASE
     Route: 048
     Dates: start: 2001, end: 201310

REACTIONS (14)
  - Hyperchlorhydria [Unknown]
  - Sleep disorder due to general medical condition, insomnia type [Unknown]
  - Feeling abnormal [Unknown]
  - Aphagia [Unknown]
  - Gastrooesophageal reflux disease [Unknown]
  - Dyspepsia [Unknown]
  - Pain [Unknown]
  - Visual acuity reduced [Unknown]
  - Deafness [Unknown]
  - Joint swelling [Unknown]
  - Arthritis [Unknown]
  - Abdominal discomfort [Unknown]
  - Abdominal pain upper [Unknown]
  - Drug dose omission [Unknown]
